FAERS Safety Report 20283308 (Version 2)
Quarter: 2022Q1

REPORT INFORMATION
  Report Type: Spontaneous
  Country: US (occurrence: US)
  Receive Date: 20220103
  Receipt Date: 20220112
  Transmission Date: 20220423
  Serious: No
  Sender: FDA-Public Use
  Company Number: US-009507513-2112USA009784

PATIENT
  Sex: Female

DRUGS (2)
  1. DIFICID [Suspect]
     Active Substance: FIDAXOMICIN
     Dosage: 1 DOSE
     Dates: start: 20211228
  2. DIFICID [Suspect]
     Active Substance: FIDAXOMICIN
     Dosage: 1 DOSE
     Route: 048
     Dates: start: 20211230

REACTIONS (3)
  - Product storage error [Unknown]
  - Product prescribing issue [Unknown]
  - No adverse event [Unknown]

NARRATIVE: CASE EVENT DATE: 20211229
